FAERS Safety Report 4322761-2 (Version None)
Quarter: 2004Q1

REPORT INFORMATION
  Report Type: 
  Country: None (occurrence: None)
  Receive Date: 20040324
  Receipt Date: 20040311
  Transmission Date: 20041129
  Serious: Yes (Other)
  Sender: FDA-Public Use
  Company Number: DE-GLAXOSMITHKLINE-D0043393A

PATIENT
  Age: 65 Year
  Sex: Male

DRUGS (2)
  1. MALARONE [Suspect]
     Indication: MALARIA PROPHYLAXIS
     Dosage: 1TAB PER DAY
     Route: 048
     Dates: start: 20031031, end: 20031130
  2. PROSTAGUTT FORTE [Concomitant]
     Route: 065

REACTIONS (3)
  - INFECTION [None]
  - INTESTINAL POLYPECTOMY [None]
  - POST PROCEDURAL HAEMATOMA [None]
